FAERS Safety Report 8036039-7 (Version None)
Quarter: 2012Q1

REPORT INFORMATION
  Report Type: 
  Country: None (occurrence: None)
  Receive Date: 20120111
  Receipt Date: 20120102
  Transmission Date: 20120608
  Serious: Yes (Congenital Anomaly)
  Sender: FDA-Public Use
  Company Number: FR-TEVA-316307ISR

PATIENT

DRUGS (1)
  1. BUPRENORPHINE [Suspect]
     Route: 064

REACTIONS (1)
  - GASTROSCHISIS [None]
